FAERS Safety Report 23365991 (Version 2)
Quarter: 2024Q1

REPORT INFORMATION
  Report Type: Report from Study
  Country: RS (occurrence: RS)
  Receive Date: 20240104
  Receipt Date: 20240112
  Transmission Date: 20240409
  Serious: Yes (Hospitalization)
  Sender: FDA-Public Use
  Company Number: RS-Merck Healthcare KGaA-2023497425

PATIENT
  Age: 21 Year
  Sex: Female

DRUGS (2)
  1. MAVENCLAD [Suspect]
     Active Substance: CLADRIBINE
     Indication: Multiple sclerosis
     Dosage: FIRST YEAR FIRST MONTH THERAPY.
     Dates: start: 20230809, end: 20230813
  2. MAVENCLAD [Suspect]
     Active Substance: CLADRIBINE
     Dosage: FIRST YEAR SECOND MONTH THERAPY.
     Dates: start: 20230909, end: 20230913

REACTIONS (2)
  - Ovarian necrosis [Recovered/Resolved]
  - Fallopian tube necrosis [Recovered/Resolved]

NARRATIVE: CASE EVENT DATE: 20231120
